FAERS Safety Report 11812258 (Version 1)
Quarter: 2015Q4

REPORT INFORMATION
  Report Type: Spontaneous
  Country: US (occurrence: US)
  Receive Date: 20151208
  Receipt Date: 20151208
  Transmission Date: 20160305
  Serious: Yes (Hospitalization)
  Sender: FDA-Public Use
  Company Number: US-BAYER-2015-480659

PATIENT
  Sex: Male

DRUGS (1)
  1. DR. SCHOLLS INGROWN TOENAIL PAIN RELIEVER [Suspect]
     Active Substance: SODIUM SULFIDE

REACTIONS (1)
  - Hospitalisation [None]
